FAERS Safety Report 6002346-2 (Version None)
Quarter: 2008Q4

REPORT INFORMATION
  Report Type: 
  Country: None (occurrence: None)
  Receive Date: 20081215
  Receipt Date: 20071113
  Transmission Date: 20090506
  Serious: No
  Sender: FDA-Public Use
  Company Number: US-AMGEN-KDL252289

PATIENT
  Sex: Male

DRUGS (8)
  1. ENBREL [Suspect]
     Indication: PSORIATIC ARTHROPATHY
     Route: 058
     Dates: start: 20070901
  2. CLONAZEPAM [Concomitant]
  3. LAMICTAL [Concomitant]
  4. TOPAMAX [Concomitant]
  5. REQUIP [Concomitant]
  6. IRON [Concomitant]
  7. TRAMADOL HCL [Concomitant]
  8. VIAGRA [Concomitant]

REACTIONS (1)
  - AMMONIA INCREASED [None]
